FAERS Safety Report 11553328 (Version 2)
Quarter: 2016Q1

REPORT INFORMATION
  Report Type: Spontaneous
  Country: US (occurrence: US)
  Receive Date: 20150925
  Receipt Date: 20160115
  Transmission Date: 20160525
  Serious: No
  Sender: FDA-Public Use
  Company Number: US-009507513-1509USA012207

PATIENT
  Age: 74 Year
  Sex: Male

DRUGS (6)
  1. FOSPHENYTOIN SODIUM. [Concomitant]
     Active Substance: FOSPHENYTOIN SODIUM
     Route: 042
  2. ACYCLOVIR. [Concomitant]
     Active Substance: ACYCLOVIR
  3. CEFTRIAXONE. [Concomitant]
     Active Substance: CEFTRIAXONE
  4. HEXADROL [Suspect]
     Active Substance: DEXAMETHASONE
     Indication: STATUS EPILEPTICUS
     Dosage: UNK
     Route: 042
  5. LACOSAMIDE [Concomitant]
     Active Substance: LACOSAMIDE
  6. AMPICILLIN [Concomitant]
     Active Substance: AMPICILLIN

REACTIONS (1)
  - Drug ineffective [Unknown]
